FAERS Safety Report 7225694-7 (Version None)
Quarter: 2011Q1

REPORT INFORMATION
  Report Type: 
  Country: None (occurrence: None)
  Receive Date: 20110107
  Receipt Date: 20110107
  Transmission Date: 20110831
  Serious: Yes (Other)
  Sender: FDA-Public Use
  Company Number: None

PATIENT
  Age: 50 Year
  Sex: Male
  Weight: 100.6985 kg

DRUGS (3)
  1. RITUXAN [Suspect]
  2. RITUXAN [Suspect]
     Indication: NON-HODGKIN'S LYMPHOMA
     Dosage: 850 MG IV 1ST DOSE
     Route: 042
  3. RITUXAN [Suspect]

REACTIONS (5)
  - THROAT TIGHTNESS [None]
  - PRURITUS [None]
  - RASH ERYTHEMATOUS [None]
  - RASH PUSTULAR [None]
  - DYSPHONIA [None]
